FAERS Safety Report 10025776 (Version 2)
Quarter: 2014Q2

REPORT INFORMATION
  Report Type: Spontaneous
  Country: US (occurrence: US)
  Receive Date: 20140320
  Receipt Date: 20140508
  Transmission Date: 20141212
  Serious: Yes (Hospitalization, Other)
  Sender: FDA-Public Use
  Company Number: US-US-EMD SERONO, INC.-7275966

PATIENT
  Age: 51 Year
  Sex: Male
  Weight: 57 kg

DRUGS (1)
  1. REBIF [Suspect]
     Indication: MULTIPLE SCLEROSIS
     Dates: start: 20100902

REACTIONS (5)
  - Cholelithiasis [Recovering/Resolving]
  - Thrombosis [Recovering/Resolving]
  - Thrombosis [Recovering/Resolving]
  - Infusion site haemorrhage [Recovered/Resolved]
  - Post procedural complication [Unknown]
